FAERS Safety Report 16757110 (Version 1)
Quarter: 2019Q3

REPORT INFORMATION
  Report Type: Spontaneous
  Country: IT (occurrence: GB)
  Receive Date: 20190829
  Receipt Date: 20190829
  Transmission Date: 20191005
  Serious: Yes (Life-Threatening, Hospitalization, Other)
  Sender: FDA-Public Use
  Company Number: IT-SUNOVION-2019SUN003566

PATIENT

DRUGS (5)
  1. DULOXETINE HYDROCHLORIDE. [Concomitant]
     Active Substance: DULOXETINE HYDROCHLORIDE
  2. AMLODIPINE [Concomitant]
     Active Substance: AMLODIPINE BESYLATE
  3. LURASIDONE HYDROCHLORIDE. [Suspect]
     Active Substance: LURASIDONE HYDROCHLORIDE
     Dosage: 18.5MG OD TITRATING UP TO 111MG OD ON 26TH APRIL
     Route: 048
     Dates: start: 20190426, end: 20190515
  4. PERINDOPRIL [Concomitant]
     Active Substance: PERINDOPRIL
  5. LURASIDONE HYDROCHLORIDE. [Suspect]
     Active Substance: LURASIDONE HYDROCHLORIDE
     Dosage: 18.5MG OD TITRATING UP TO 111MG OD ON 26TH APRIL
     Route: 048
     Dates: start: 20190320, end: 20190425

REACTIONS (10)
  - Agitation [Recovered/Resolved]
  - Suicidal ideation [Recovered/Resolved]
  - Confusional state [Unknown]
  - Suicide attempt [Recovered/Resolved with Sequelae]
  - Tremor [Unknown]
  - Sleep deficit [Unknown]
  - Mydriasis [Unknown]
  - Insomnia [Recovered/Resolved]
  - Delirium [Unknown]
  - Anxiety [Unknown]

NARRATIVE: CASE EVENT DATE: 20190426
